FAERS Safety Report 12763398 (Version 1)
Quarter: 2016Q3

REPORT INFORMATION
  Report Type: Spontaneous
  Country: US (occurrence: US)
  Receive Date: 20160919
  Receipt Date: 20160919
  Transmission Date: 20161109
  Serious: Yes (Life-Threatening, Hospitalization, Disabling)
  Sender: FDA-Public Use
  Company Number: None

PATIENT
  Age: 67 Year
  Sex: Female
  Weight: 76.5 kg

DRUGS (1)
  1. ACCUTANE [Suspect]
     Active Substance: ISOTRETINOIN
     Indication: CYST
     Route: 048

REACTIONS (13)
  - Influenza like illness [None]
  - Infection [None]
  - Suicidal ideation [None]
  - Arthritis [None]
  - Irritable bowel syndrome [None]
  - Neuropathy peripheral [None]
  - Exercise tolerance decreased [None]
  - Depression [None]
  - Fatigue [None]
  - Pain [None]
  - Dyspepsia [None]
  - Loss of libido [None]
  - Visual impairment [None]

NARRATIVE: CASE EVENT DATE: 20160919
